FAERS Safety Report 9303007 (Version 4)
Quarter: 2013Q2

REPORT INFORMATION
  Report Type: Spontaneous
  Country: IT (occurrence: None)
  Receive Date: 20130516
  Receipt Date: 20130607
  Transmission Date: 20140414
  Serious: Yes (Life-Threatening, Other)
  Sender: FDA-Public Use
  Company Number: AUR-APL-2013-04101

PATIENT
  Age: 23 Year
  Sex: Female

DRUGS (4)
  1. CITALOPRAM (CITALOPRAM) [Suspect]
     Indication: DEPRESSION
     Dosage: (15 ML,TOTAL)
     Route: 048
     Dates: start: 20130416, end: 20130416
  2. CLOTIAZEPAM [Suspect]
     Indication: DEPRESSION
     Dosage: (20 ML,TOTAL)
     Route: 048
     Dates: start: 20130416, end: 20130416
  3. RIVOTRIL (CLONAZEPAM) [Suspect]
     Indication: EPILEPSY
     Dosage: (10 ML,TOTAL)
     Route: 048
     Dates: start: 20130416, end: 20130416
  4. AMITRIPTYLINE HYDROCHLORIDE [Suspect]
     Indication: DEPRESSION
     Dosage: (20 DROPS/TOTAL)
     Route: 048
     Dates: start: 20130416, end: 20130416

REACTIONS (4)
  - Coma [None]
  - Toxicity to various agents [None]
  - Suicide attempt [None]
  - Overdose [None]
